FAERS Safety Report 8285599-X (Version None)
Quarter: 2012Q2

REPORT INFORMATION
  Report Type: 
  Country: None (occurrence: None)
  Receive Date: 20120413
  Receipt Date: 20120113
  Transmission Date: 20120825
  Serious: No
  Sender: FDA-Public Use
  Company Number: US-ASTRAZENECA-2011SE70982

PATIENT
  Age: 49 Year
  Sex: Male
  Weight: 66.7 kg

DRUGS (5)
  1. CINGULAR [Concomitant]
  2. PRILOSEC [Concomitant]
  3. NEXIUM [Suspect]
     Indication: GASTROOESOPHAGEAL REFLUX DISEASE
     Route: 048
     Dates: start: 20110101
  4. NEXIUM [Suspect]
     Route: 048
     Dates: start: 20111101
  5. CLARITIN [Concomitant]

REACTIONS (2)
  - ERECTILE DYSFUNCTION [None]
  - INAPPROPRIATE SCHEDULE OF DRUG ADMINISTRATION [None]
